FAERS Safety Report 8193290-3 (Version None)
Quarter: 2012Q1

REPORT INFORMATION
  Report Type: 
  Country: None (occurrence: None)
  Receive Date: 20120308
  Receipt Date: 20120228
  Transmission Date: 20120608
  Serious: Yes (Hospitalization)
  Sender: FDA-Public Use
  Company Number: JP-JNJFOC-20120212450

PATIENT
  Sex: Female
  Weight: 23.13 kg

DRUGS (17)
  1. MAGMITT [Concomitant]
     Route: 048
  2. GLAKAY [Concomitant]
     Route: 048
  3. HOCHU-EKKI-TO [Concomitant]
     Route: 048
  4. ONEALFA [Concomitant]
     Route: 048
  5. FUNGIZONE [Concomitant]
     Route: 048
  6. NEUROTROPIN [Concomitant]
  7. ENTERONON-R [Concomitant]
     Route: 048
  8. SIMPONI [Suspect]
     Indication: RHEUMATOID ARTHRITIS
     Route: 058
     Dates: start: 20120113
  9. INDOMETHACIN [Concomitant]
     Route: 048
  10. COTRIM [Concomitant]
     Route: 048
  11. ISODINE [Concomitant]
     Route: 048
  12. FENTANYL-100 [Concomitant]
     Indication: RHEUMATOID ARTHRITIS
     Route: 062
  13. RABEPRAZOLE SODIUM [Concomitant]
     Route: 048
  14. TRACLEER [Concomitant]
     Route: 048
  15. SIMPONI [Suspect]
     Route: 058
     Dates: start: 20120207
  16. PREDNISOLONE [Concomitant]
     Indication: RHEUMATOID ARTHRITIS
     Route: 048
     Dates: start: 20120107
  17. LASIX [Concomitant]

REACTIONS (3)
  - FALL [None]
  - FEMORAL NECK FRACTURE [None]
  - POST PROCEDURAL HAEMATOMA [None]
